FAERS Safety Report 17721162 (Version 1)
Quarter: 2020Q2

REPORT INFORMATION
  Report Type: Spontaneous
  Country: FR (occurrence: FR)
  Receive Date: 20200429
  Receipt Date: 20200429
  Transmission Date: 20200714
  Serious: Yes (Hospitalization, Other)
  Sender: FDA-Public Use
  Company Number: FR-PFIZER INC-2020168414

PATIENT
  Age: 78 Year
  Sex: Male
  Weight: 75 kg

DRUGS (5)
  1. ALPRAZOLAM. [Suspect]
     Active Substance: ALPRAZOLAM
     Dosage: 0.25 MILLIGRAM, QD
     Route: 048
     Dates: end: 20200326
  2. LIPTRUZET [Concomitant]
     Active Substance: ATORVASTATIN CALCIUM\EZETIMIBE
     Dosage: UNK
     Route: 048
     Dates: end: 20200325
  3. PANTOPRAZOLE [Suspect]
     Active Substance: PANTOPRAZOLE
     Dosage: 20 MILLIGRAM, QD
     Route: 048
     Dates: end: 20200324
  4. ZYLORIC [Suspect]
     Active Substance: ALLOPURINOL
     Dosage: 300 MILLIGRAM, QD
     Route: 048
     Dates: start: 20200220, end: 20200324
  5. SEROPLEX [Suspect]
     Active Substance: ESCITALOPRAM OXALATE
     Dosage: 1 DF, 1X/DAY
     Route: 048
     Dates: end: 20200325

REACTIONS (3)
  - Rash maculo-papular [Recovering/Resolving]
  - Acute kidney injury [Recovered/Resolved]
  - Hyperthermia [Recovered/Resolved]

NARRATIVE: CASE EVENT DATE: 20200323
